FAERS Safety Report 10741234 (Version 1)
Quarter: 2015Q1

REPORT INFORMATION
  Report Type: Spontaneous
  Country: US (occurrence: None)
  Receive Date: 20150123
  Receipt Date: 20150123
  Transmission Date: 20150721
  Serious: Yes (Other)
  Sender: FDA-Public Use
  Company Number: None

PATIENT
  Age: 15 Year
  Sex: Female

DRUGS (7)
  1. TRAZODONE 75 MG [Concomitant]
  2. VISTARIL 50 MG [Concomitant]
  3. PRAZOSIN [Suspect]
     Active Substance: PRAZOSIN
     Indication: POST-TRAUMATIC STRESS DISORDER
     Dosage: ONE AT HS
     Dates: start: 20140926, end: 20141007
  4. ZOLOFT [Suspect]
     Active Substance: SERTRALINE HYDROCHLORIDE
  5. PRAZOSIN [Suspect]
     Active Substance: PRAZOSIN
     Indication: NIGHTMARE
     Dosage: ONE AT HS
     Dates: start: 20140926, end: 20141007
  6. MELATONIN 5 MG [Concomitant]
  7. IBUPROFEN 600 MG [Concomitant]

REACTIONS (2)
  - Breast pain [None]
  - Blood prolactin increased [None]

NARRATIVE: CASE EVENT DATE: 20141008
